FAERS Safety Report 19130827 (Version 1)
Quarter: 2021Q2

REPORT INFORMATION
  Report Type: Spontaneous
  Country: US (occurrence: US)
  Receive Date: 20210413
  Receipt Date: 20210413
  Transmission Date: 20210717
  Serious: Yes (Hospitalization, Other)
  Sender: FDA-Public Use
  Company Number: US-SA-2021SA120898

PATIENT
  Sex: Male

DRUGS (1)
  1. DUPIXENT [Suspect]
     Active Substance: DUPILUMAB
     Indication: ASTHMA
     Dosage: 300 MG,QOW
     Route: 058

REACTIONS (4)
  - Cardiac perforation [Unknown]
  - Unevaluable event [Unknown]
  - White blood cell count increased [Unknown]
  - Cough [Unknown]

NARRATIVE: CASE EVENT DATE: 2021
